FAERS Safety Report 21926637 (Version 1)
Quarter: 2023Q1

REPORT INFORMATION
  Report Type: Spontaneous
  Country: US (occurrence: None)
  Receive Date: 20230127
  Receipt Date: 20230127
  Transmission Date: 20230417
  Serious: Yes (Other)
  Sender: FDA-Public Use
  Company Number: None

PATIENT
  Sex: Male

DRUGS (1)
  1. FINGOLIMOD [Suspect]
     Active Substance: FINGOLIMOD
     Indication: Multiple sclerosis
     Dosage: 0.5MG DAILY ORAL?
     Route: 048
     Dates: start: 202212

REACTIONS (4)
  - Tic [None]
  - Disorientation [None]
  - Seizure [None]
  - Product substitution issue [None]
